FAERS Safety Report 6439008-3 (Version None)
Quarter: 2009Q4

REPORT INFORMATION
  Report Type: 
  Country: None (occurrence: None)
  Receive Date: 20091113
  Receipt Date: 20091109
  Transmission Date: 20100525
  Serious: Yes (Hospitalization)
  Sender: FDA-Public Use
  Company Number: FR-ROCHE-667504

PATIENT
  Sex: Male

DRUGS (4)
  1. VALIUM [Suspect]
     Route: 048
     Dates: start: 20090701
  2. RISPERDAL [Suspect]
     Indication: DELUSION
     Dosage: FORM REPORTED AS DIVISIBLE COATED TABLET
     Route: 048
     Dates: start: 20090701
  3. DEPAKOTE [Suspect]
     Dosage: FORM: GASTRORESISTANT TABLET
     Route: 048
     Dates: start: 20090701
  4. LEPTICUR [Suspect]
     Route: 048
     Dates: start: 20090701

REACTIONS (3)
  - CALCULUS BLADDER [None]
  - CHOLECYSTITIS ACUTE [None]
  - CONSTIPATION [None]
